FAERS Safety Report 16190642 (Version 1)
Quarter: 2019Q2

REPORT INFORMATION
  Report Type: Spontaneous
  Country: US (occurrence: US)
  Receive Date: 20190412
  Receipt Date: 20190412
  Transmission Date: 20190711
  Serious: No
  Sender: FDA-Public Use
  Company Number: US-PFIZER INC-2019051828

PATIENT
  Age: 71 Year
  Sex: Male
  Weight: 102 kg

DRUGS (2)
  1. IBRANCE [Suspect]
     Active Substance: PALBOCICLIB
     Dosage: 100 MG, UNK
  2. IBRANCE [Suspect]
     Active Substance: PALBOCICLIB
     Indication: BREAST CANCER MALE
     Dosage: 125 MG, CYCLIC, DAILY FOR 21 DAYS
     Route: 048
     Dates: start: 201804

REACTIONS (2)
  - Product use issue [Unknown]
  - Lung disorder [Unknown]

NARRATIVE: CASE EVENT DATE: 201808
